FAERS Safety Report 15378901 (Version 1)
Quarter: 2018Q3

REPORT INFORMATION
  Report Type: Spontaneous
  Country: US (occurrence: US)
  Receive Date: 20180913
  Receipt Date: 20180913
  Transmission Date: 20181010
  Serious: Yes (Hospitalization, Other)
  Sender: FDA-Public Use
  Company Number: US-GLAXOSMITHKLINE-US2018164360

PATIENT
  Age: 64 Year
  Sex: Female

DRUGS (1)
  1. ANORO ELLIPTA [Suspect]
     Active Substance: UMECLIDINIUM BROMIDE\VILANTEROL TRIFENATATE
     Dosage: UNK
     Dates: start: 2016, end: 201809

REACTIONS (6)
  - Myocardial infarction [Recovered/Resolved]
  - Complication associated with device [Recovered/Resolved]
  - Drug ineffective [Unknown]
  - Cardiac pacemaker removal [Recovered/Resolved]
  - Dyspnoea [Unknown]
  - Infection [Unknown]

NARRATIVE: CASE EVENT DATE: 201802
